FAERS Safety Report 9518779 (Version 1)
Quarter: 2013Q1

REPORT INFORMATION
  Report Type: Spontaneous
  Country: US (occurrence: None)
  Receive Date: 20130305
  Receipt Date: 20130305
  Transmission Date: 20140127
  Serious: Yes (Other)
  Sender: FDA-Public Use
  Company Number: 163-21880-12060327

PATIENT
  Age: 83 Year
  Sex: Female

DRUGS (2)
  1. REVLIMID (LENALIDOMIDE) (CAPSULES) [Suspect]
     Indication: 5Q MINUS SYNDROME
     Dosage: 1 IN 1 D
     Route: 048
  2. PROCRIT [Concomitant]

REACTIONS (2)
  - Venous thrombosis limb [None]
  - Joint swelling [None]
